FAERS Safety Report 25676736 (Version 1)
Quarter: 2025Q3

REPORT INFORMATION
  Report Type: Spontaneous
  Country: US (occurrence: None)
  Receive Date: 20250812
  Receipt Date: 20250812
  Transmission Date: 20251021
  Serious: No
  Sender: FDA-CTU
  Company Number: None

PATIENT
  Age: 65 Year
  Sex: Female
  Weight: 74.84 kg

DRUGS (9)
  1. TREMFYA [Suspect]
     Active Substance: GUSELKUMAB
     Indication: Psoriatic arthropathy
     Route: 058
     Dates: start: 20250523, end: 20250811
  2. cetirizine 10 mg tablet [Concomitant]
  3. clobetasol 0.05% topical solution [Concomitant]
  4. levothyroxine 0.100 mg tablet [Concomitant]
  5. nurtec 75 mg ODT [Concomitant]
  6. ropinirole 0.5 mg tablet [Concomitant]
  7. SUMATRIPTAN [Concomitant]
     Active Substance: SUMATRIPTAN
  8. Co Q-10 100 mg tablet [Concomitant]
  9. Vitamin D capsule [Concomitant]

REACTIONS (2)
  - Psoriatic arthropathy [None]
  - Drug ineffective [None]

NARRATIVE: CASE EVENT DATE: 20250523
